FAERS Safety Report 24131363 (Version 1)
Quarter: 2024Q3

REPORT INFORMATION
  Report Type: Spontaneous
  Country: CN (occurrence: CN)
  Receive Date: 20240724
  Receipt Date: 20240724
  Transmission Date: 20241016
  Serious: Yes (Other)
  Sender: ACCORD
  Company Number: None

PATIENT
  Age: 68 Year
  Sex: Female
  Weight: 53 kg

DRUGS (1)
  1. TRASTUZUMAB [Suspect]
     Active Substance: TRASTUZUMAB
     Indication: Neoplasm malignant
     Dosage: 330 MILLIGRAM, QD
     Dates: start: 20240703, end: 20240703

REACTIONS (2)
  - Pruritus [Recovering/Resolving]
  - Papule [Recovered/Resolved]

NARRATIVE: CASE EVENT DATE: 20240703
